FAERS Safety Report 11562241 (Version 1)
Quarter: 2015Q3

REPORT INFORMATION
  Report Type: Spontaneous
  Country: US (occurrence: US)
  Receive Date: 20150916
  Receipt Date: 20150916
  Transmission Date: 20151125
  Serious: No
  Sender: FDA-Public Use
  Company Number: US-ELI_LILLY_AND_COMPANY-US200812000420

PATIENT
  Age: 64 Year
  Sex: Female

DRUGS (18)
  1. SINGULAIR [Concomitant]
     Active Substance: MONTELUKAST SODIUM
     Dosage: UNK, UNKNOWN
  2. REFRESH TEARS LUBRICANT [Concomitant]
     Active Substance: CARBOXYMETHYLCELLULOSE SODIUM
     Dosage: UNK, UNKNOWN
  3. OMEGA 3 [Concomitant]
     Active Substance: OMEGA-3 FATTY ACIDS
     Dosage: UNK, UNKNOWN
  4. TUMS ULTRA [Concomitant]
     Active Substance: CALCIUM CARBONATE
     Dosage: UNK, UNKNOWN
  5. ALBUTEROL. [Concomitant]
     Active Substance: ALBUTEROL
     Dosage: UNK, UNKNOWN
  6. VITAMIN C [Concomitant]
     Active Substance: ASCORBIC ACID
     Dosage: UNK, UNKNOWN
  7. MIRTAZAPINE. [Concomitant]
     Active Substance: MIRTAZAPINE
     Dosage: UNK, UNKNOWN
  8. AMLODIPINE [Concomitant]
     Active Substance: AMLODIPINE BESYLATE
     Dosage: UNK, UNKNOWN
  9. AMBIEN [Concomitant]
     Active Substance: ZOLPIDEM TARTRATE
     Dosage: UNK, UNKNOWN
  10. HYDROCODONE [Concomitant]
     Active Substance: HYDROCODONE
     Dosage: UNK, UNKNOWN
  11. ABILIFY [Concomitant]
     Active Substance: ARIPIPRAZOLE
     Dosage: UNK, UNKNOWN
  12. XANAX [Concomitant]
     Active Substance: ALPRAZOLAM
     Dosage: UNK, UNKNOWN
  13. COUMADIN [Concomitant]
     Active Substance: WARFARIN SODIUM
     Dosage: UNK, UNKNOWN
  14. VITAMIN B12 [Concomitant]
     Active Substance: CYANOCOBALAMIN
     Dosage: UNK, UNKNOWN
  15. VITAMIN D3 [Concomitant]
     Active Substance: CHOLECALCIFEROL
     Dosage: UNK, UNKNOWN
  16. VITRON-C [Concomitant]
     Dosage: UNK, UNKNOWN
  17. FORTEO [Suspect]
     Active Substance: TERIPARATIDE
     Indication: OSTEOPOROSIS
     Dosage: 20 UG, DAILY (1/D)
     Dates: start: 20080725
  18. CENTRUM SILVER [Concomitant]
     Active Substance: VITAMINS
     Dosage: UNK, UNKNOWN

REACTIONS (1)
  - Bone density decreased [Not Recovered/Not Resolved]

NARRATIVE: CASE EVENT DATE: 20081001
